FAERS Safety Report 10034777 (Version 2)
Quarter: 2014Q1

REPORT INFORMATION
  Report Type: Spontaneous
  Country: MY (occurrence: MY)
  Receive Date: 20140325
  Receipt Date: 20140325
  Transmission Date: 20141002
  Serious: Yes (Other)
  Sender: FDA-Public Use
  Company Number: MY-PFIZER INC-2014020054

PATIENT
  Age: 51 Year
  Sex: Male
  Weight: 90 kg

DRUGS (7)
  1. DILANTIN [Suspect]
     Indication: EPILEPSY
     Dosage: 300 MG, ON
     Route: 048
     Dates: start: 20120720, end: 20120802
  2. PERINDOPRIL [Concomitant]
     Indication: HYPERTENSION
     Dosage: 4 MG, OD
     Route: 048
     Dates: start: 20120805
  3. LOVASTATIN [Concomitant]
     Indication: DYSLIPIDAEMIA
     Dosage: 20 MG, OD
     Route: 048
     Dates: start: 20120805
  4. AMLODIPINE [Concomitant]
     Indication: HYPERTENSION
     Dosage: 5 MG, OD
     Route: 048
     Dates: start: 20120805, end: 20120807
  5. AMLODIPINE [Concomitant]
     Dosage: 7.5 MG, OD
     Dates: start: 20120808, end: 20120808
  6. AMLODIPINE [Concomitant]
     Dosage: 5 MG, OD
     Dates: start: 20120808
  7. FONDAPARINUX [Concomitant]
     Indication: ANGINA UNSTABLE
     Dosage: 2.5 MG, OD
     Route: 058
     Dates: start: 20120804, end: 20120806

REACTIONS (2)
  - Rash maculo-papular [Recovered/Resolved]
  - Pruritus generalised [Recovered/Resolved]
